FAERS Safety Report 7701855-5 (Version None)
Quarter: 2011Q3

REPORT INFORMATION
  Report Type: 
  Country: None (occurrence: None)
  Receive Date: 20110822
  Receipt Date: 20110810
  Transmission Date: 20111222
  Serious: Yes (Hospitalization)
  Sender: FDA-Public Use
  Company Number: US-ELI_LILLY_AND_COMPANY-US201108004446

PATIENT
  Sex: Female

DRUGS (5)
  1. HUMALOG [Suspect]
     Indication: TYPE 2 DIABETES MELLITUS
     Dosage: UNK, PRN
     Dates: start: 20040101
  2. LANTUS [Concomitant]
  3. HUMALOG [Suspect]
     Dosage: UNK, PRN
     Dates: start: 20040101
  4. METFORMIN HCL [Concomitant]
  5. HUMALOG [Suspect]
     Dosage: UNK, PRN
     Dates: start: 20040101

REACTIONS (4)
  - VISUAL IMPAIRMENT [None]
  - MACULAR DEGENERATION [None]
  - GLAUCOMA [None]
  - LUNG TRANSPLANT [None]
